FAERS Safety Report 16264971 (Version 1)
Quarter: 2019Q2

REPORT INFORMATION
  Report Type: Spontaneous
  Country: RU (occurrence: RU)
  Receive Date: 20190502
  Receipt Date: 20190502
  Transmission Date: 20190711
  Serious: Yes (Other)
  Sender: FDA-Public Use
  Company Number: PHHY2019RU096609

PATIENT
  Sex: Male

DRUGS (4)
  1. ETOPOSIDE. [Suspect]
     Active Substance: ETOPOSIDE
     Indication: PROSTATE CANCER
     Dosage: 100 MG/M2, UNK (ON DAYS 1,2,3)
     Route: 065
     Dates: start: 20151221, end: 20160206
  2. BICALUTAMIDE. [Suspect]
     Active Substance: BICALUTAMIDE
     Indication: ANDROGEN THERAPY
     Dosage: 50 MG, QD
     Route: 065
     Dates: start: 20151221, end: 20160206
  3. GOSERELIN [Suspect]
     Active Substance: GOSERELIN
     Indication: ANDROGEN THERAPY
     Dosage: 3.8 MG, UNK (28 DAYS CYCLE)
     Route: 058
     Dates: start: 20151221, end: 20160206
  4. CISPLATIN. [Suspect]
     Active Substance: CISPLATIN
     Indication: PROSTATE CANCER
     Dosage: 75 MG/M2, UNK (ON DAY 1) (21 DAYS CYCLE)
     Route: 065
     Dates: start: 20151221, end: 20160206

REACTIONS (3)
  - Product use in unapproved indication [Unknown]
  - Malignant neoplasm progression [Unknown]
  - Prostate cancer [Unknown]
